FAERS Safety Report 4768206-X (Version None)
Quarter: 2005Q3

REPORT INFORMATION
  Report Type: 
  Country: None (occurrence: None)
  Receive Date: 20050914
  Receipt Date: 20050706
  Transmission Date: 20060218
  Serious: Yes (Other)
  Sender: FDA-Public Use
  Company Number: HK-ABBOTT-05P-075-0305493-00

PATIENT
  Age: 70 Year
  Sex: Male

DRUGS (6)
  1. CLARITHROMYCIN [Suspect]
     Indication: PNEUMONIA
     Route: 048
     Dates: start: 20020425, end: 20020504
  2. COLCHICINE [Interacting]
     Indication: GOUT
     Route: 048
     Dates: start: 20020415, end: 20020504
  3. ESOMEPRAZOLE [Concomitant]
     Indication: GASTRIC ULCER
  4. ADALAT [Concomitant]
     Indication: HYPERTENSION
  5. METOPROLOL [Concomitant]
     Indication: HYPERTENSION
  6. DOLOGESIC [Concomitant]
     Indication: ANALGESIC EFFECT

REACTIONS (7)
  - DIARRHOEA [None]
  - DRUG INTERACTION [None]
  - DRUG TOXICITY [None]
  - GOUT [None]
  - NAUSEA [None]
  - PANCYTOPENIA [None]
  - VOMITING [None]
